FAERS Safety Report 5890434-0 (Version None)
Quarter: 2008Q3

REPORT INFORMATION
  Report Type: 
  Country: None (occurrence: None)
  Receive Date: 20080921
  Receipt Date: 20080811
  Transmission Date: 20090109
  Serious: Yes (Other)
  Sender: FDA-Public Use
  Company Number: GB-BAUSCH-2008BL003492

PATIENT
  Sex: Male

DRUGS (5)
  1. CHLORAMPHENICOL [Suspect]
     Indication: DRUG USE FOR UNKNOWN INDICATION
     Route: 047
  2. TETRACAINE POLYGYL STERILE OPHTHALMIC SOLUTION [Suspect]
     Indication: DRUG USE FOR UNKNOWN INDICATION
     Route: 047
  3. LIGNOCAINE [Suspect]
     Indication: DRUG USE FOR UNKNOWN INDICATION
     Route: 031
  4. POVIDONE IODINE [Suspect]
     Indication: DRUG USE FOR UNKNOWN INDICATION
  5. KENALOG [Suspect]
     Indication: DIABETIC RETINAL OEDEMA
     Route: 031

REACTIONS (2)
  - ENDOPHTHALMITIS [None]
  - VISUAL ACUITY REDUCED [None]
